FAERS Safety Report 8317806-9 (Version None)
Quarter: 2012Q2

REPORT INFORMATION
  Report Type: 
  Country: None (occurrence: None)
  Receive Date: 20120427
  Receipt Date: 20120419
  Transmission Date: 20120825
  Serious: Yes (Hospitalization, Other)
  Sender: FDA-Public Use
  Company Number: US-BAYER-2012-003065

PATIENT
  Age: 36 Year
  Sex: Female
  Weight: 81.633 kg

DRUGS (9)
  1. FLAXSEED OIL [Concomitant]
     Dosage: UNK
     Route: 048
     Dates: end: 20080227
  2. PAXIL [Concomitant]
     Dosage: 20 MG, BID
     Route: 048
     Dates: end: 20080228
  3. MULTI-VITAMIN [Concomitant]
     Dosage: UNK
     Route: 048
     Dates: end: 20080227
  4. DROSPIRENONE AND ETHINYL ESTRADIOL [Suspect]
     Dosage: UNK
     Dates: start: 19980101, end: 20080101
  5. STRATTERA [Concomitant]
     Indication: ATTENTION DEFICIT/HYPERACTIVITY DISORDER
     Dosage: 75 MG, UNK
     Route: 048
     Dates: end: 20080228
  6. YASMIN [Suspect]
     Dosage: UNK
     Dates: start: 19980101, end: 20080101
  7. CIPROFLOXACIN HCL [Concomitant]
     Indication: URINARY TRACT INFECTION
     Dosage: UNK
     Dates: end: 20080228
  8. IBUPROFEN [Concomitant]
     Route: 048
  9. STRATTERA [Concomitant]
     Dosage: 25 MG, UNK
     Route: 048
     Dates: end: 20080228

REACTIONS (7)
  - HERNIA [None]
  - GENERAL PHYSICAL HEALTH DETERIORATION [None]
  - PAIN [None]
  - CHOLECYSTITIS ACUTE [None]
  - GALLBLADDER INJURY [None]
  - EMOTIONAL DISTRESS [None]
  - ANXIETY [None]
